FAERS Safety Report 20661682 (Version 1)
Quarter: 2022Q2

REPORT INFORMATION
  Report Type: Spontaneous
  Country: IT (occurrence: IT)
  Receive Date: 20220401
  Receipt Date: 20220401
  Transmission Date: 20220721
  Serious: Yes (Congenital Anomaly, Other)
  Sender: FDA-Public Use
  Company Number: IT-ABBVIE-22K-083-4341711-00

PATIENT

DRUGS (1)
  1. VALPROATE SODIUM [Suspect]
     Active Substance: VALPROATE SODIUM
     Indication: Maternal exposure timing unspecified
     Route: 064

REACTIONS (6)
  - Multiple congenital abnormalities [Not Recovered/Not Resolved]
  - Talipes [Not Recovered/Not Resolved]
  - Disease recurrence [Not Recovered/Not Resolved]
  - Language disorder [Not Recovered/Not Resolved]
  - Learning disorder [Not Recovered/Not Resolved]
  - Foetal exposure during pregnancy [Unknown]
